FAERS Safety Report 22881864 (Version 2)
Quarter: 2023Q4

REPORT INFORMATION
  Report Type: Report from Study
  Country: AR (occurrence: AR)
  Receive Date: 20230830
  Receipt Date: 20231125
  Transmission Date: 20240109
  Serious: Yes (Hospitalization, Other)
  Sender: FDA-Public Use
  Company Number: AR-002147023-NVSC2022AR284492

PATIENT
  Age: 66 Year
  Sex: Male

DRUGS (2)
  1. MAYZENT [Suspect]
     Active Substance: SIPONIMOD
     Indication: Multiple sclerosis
     Dosage: 2 MG, QD
     Route: 048
     Dates: start: 20221110
  2. MAYZENT [Suspect]
     Active Substance: SIPONIMOD
     Dosage: UNK, Q72H (EVERY THREE DAYS)
     Route: 065

REACTIONS (9)
  - Fall [Unknown]
  - Head injury [Unknown]
  - Intentional product misuse [Unknown]
  - Gait disturbance [Unknown]
  - Depressed mood [Unknown]
  - Aphasia [Unknown]
  - Nervousness [Unknown]
  - Fatigue [Unknown]
  - Product distribution issue [Unknown]

NARRATIVE: CASE EVENT DATE: 20221130
